FAERS Safety Report 21209841 (Version 1)
Quarter: 2022Q3

REPORT INFORMATION
  Report Type: Spontaneous
  Country: US (occurrence: None)
  Receive Date: 20220813
  Receipt Date: 20220813
  Transmission Date: 20221027
  Serious: No
  Sender: FDA-Public Use
  Company Number: 2022A272833

PATIENT
  Age: 858 Month
  Sex: Male
  Weight: 77.1 kg

DRUGS (1)
  1. FARXIGA [Suspect]
     Active Substance: DAPAGLIFLOZIN PROPANEDIOL
     Indication: Diabetes mellitus
     Route: 048
     Dates: start: 20220721

REACTIONS (9)
  - Urticaria [Not Recovered/Not Resolved]
  - Hypersensitivity [Unknown]
  - Tongue discolouration [Unknown]
  - Weight decreased [Unknown]
  - Asthenia [Unknown]
  - Thirst [Unknown]
  - Pollakiuria [Not Recovered/Not Resolved]
  - Rash [Unknown]
  - Rash erythematous [Not Recovered/Not Resolved]

NARRATIVE: CASE EVENT DATE: 20220601
